FAERS Safety Report 17784304 (Version 1)
Quarter: 2020Q2

REPORT INFORMATION
  Report Type: Spontaneous
  Country: US (occurrence: US)
  Receive Date: 20200513
  Receipt Date: 20200513
  Transmission Date: 20200714
  Serious: No
  Sender: FDA-Public Use
  Company Number: US-PFIZER INC-2019067316

PATIENT
  Age: 79 Year
  Sex: Female
  Weight: 77.11 kg

DRUGS (3)
  1. PREMARIN [Suspect]
     Active Substance: ESTROGENS, CONJUGATED
     Dosage: 1 G, 1X/DAY (1 GM INSERTED VAGINALLY EVERY DAY AT NIGHT)
     Route: 067
  2. PREMARIN [Suspect]
     Active Substance: ESTROGENS, CONJUGATED
     Indication: ATROPHY
     Dosage: 1 G, 1X/DAYAT BEDTIME
     Route: 067
  3. PREMARIN [Suspect]
     Active Substance: ESTROGENS, CONJUGATED
     Dosage: 1 G,  3 TIMES/ WEEK AT BEDTIME
     Route: 067

REACTIONS (4)
  - Vaginal disorder [Unknown]
  - Off label use [Unknown]
  - Intentional dose omission [Not Recovered/Not Resolved]
  - Hypoacusis [Unknown]
